FAERS Safety Report 6687406-5 (Version None)
Quarter: 2010Q2

REPORT INFORMATION
  Report Type: 
  Country: None (occurrence: None)
  Receive Date: 20100416
  Receipt Date: 20100416
  Transmission Date: 20101027
  Serious: Yes (Disabling)
  Sender: FDA-Public Use
  Company Number: None

PATIENT
  Age: 59 Year
  Sex: Female
  Weight: 81.6475 kg

DRUGS (1)
  1. SYMBICORT [Suspect]
     Indication: ASTHMA
     Dosage: 120 INHALATIONS 2 X'S TWICE A DAY INHAL
     Route: 055
     Dates: start: 20080624, end: 20100414

REACTIONS (3)
  - AGEUSIA [None]
  - DRY MOUTH [None]
  - ORAL CANDIDIASIS [None]
